FAERS Safety Report 16334215 (Version 1)
Quarter: 2019Q2

REPORT INFORMATION
  Report Type: Spontaneous
  Country: NL (occurrence: NL)
  Receive Date: 20190520
  Receipt Date: 20190520
  Transmission Date: 20190711
  Serious: Yes (Other)
  Sender: FDA-Public Use
  Company Number: NL-PFIZER INC-2019204270

PATIENT
  Age: 63 Year
  Sex: Female

DRUGS (36)
  1. PACLITAXEL. [Suspect]
     Active Substance: PACLITAXEL
     Indication: HER-2 POSITIVE BREAST CANCER
     Dosage: 130 MG, WEEKLY (DATE OF LAST DOSE PRIOR TO SAE : 25/JAN/2013)
     Route: 042
     Dates: start: 20121123, end: 20130125
  2. FLAGYL [Concomitant]
     Active Substance: METRONIDAZOLE\METRONIDAZOLE HYDROCHLORIDE
     Dosage: 1500 MG, 1X/DAY
     Route: 065
     Dates: start: 20130614, end: 20130624
  3. MAGNESIUM HYDROXIDE. [Concomitant]
     Active Substance: MAGNESIUM HYDROXIDE
     Dosage: 1448 MG, 1X/DAY
     Route: 065
     Dates: start: 20130121, end: 20130211
  4. ESOMEPRAZOLE. [Concomitant]
     Active Substance: ESOMEPRAZOLE MAGNESIUM
     Dosage: 40 MG, 1X/DAY
     Route: 065
  5. CEFUROXIME. [Concomitant]
     Active Substance: CEFUROXIME
     Dosage: 2250 MG, 1X/DAY
     Route: 065
     Dates: start: 20130113, end: 20130117
  6. PREDNISONE. [Concomitant]
     Active Substance: PREDNISONE
     Dosage: 30 MG, 1X/DAY
     Route: 065
     Dates: start: 20130210, end: 20130214
  7. COLECALCIFEROL [Concomitant]
     Active Substance: CHOLECALCIFEROL
     Dosage: 1, 1X/DAY (400 IE)
     Route: 065
     Dates: start: 20130205, end: 20130211
  8. TRASTUZUMAB. [Suspect]
     Active Substance: TRASTUZUMAB
     Dosage: 6 MG/KG, EVERY 3 WEEKS (DATE OF LAST DOSE PRIOR TO LVEF DECLINE BECOMING SERIOUS:05APR2013 350 MG..
     Route: 042
     Dates: start: 20121214, end: 20130405
  9. CEFUROXIME. [Concomitant]
     Active Substance: CEFUROXIME
     Dosage: 2250 MG, 1X/DAY
     Route: 065
     Dates: start: 20130213, end: 20130218
  10. ATROVENT [Concomitant]
     Active Substance: IPRATROPIUM BROMIDE
     Dosage: 80 UG, 1X/DAY
     Route: 065
     Dates: start: 201210
  11. NOVORAPID [Concomitant]
     Active Substance: INSULIN ASPART
     Dosage: 3, 1X/DAY (4IE)
     Route: 065
     Dates: start: 20130114, end: 20130122
  12. SODIUM CHLORIDE. [Concomitant]
     Active Substance: SODIUM CHLORIDE
     Dosage: 1 UNK, UNK
     Route: 065
     Dates: start: 20130131, end: 20130131
  13. OXAZEPAM. [Concomitant]
     Active Substance: OXAZEPAM
     Dosage: 10 MG, AS NEEDED
     Route: 065
     Dates: start: 20130113
  14. DICLOFENAC [Concomitant]
     Active Substance: DICLOFENAC
     Dosage: 150 MG, 1X/DAY
     Route: 065
  15. ULCOGANT [Concomitant]
     Active Substance: SUCRALFATE
     Dosage: 3000 MG, 1X/DAY
     Route: 065
     Dates: start: 20130206, end: 20130211
  16. LOPERAMIDE [Concomitant]
     Active Substance: LOPERAMIDE
     Dosage: 1, AS NEEDED
     Route: 065
     Dates: start: 20121205
  17. LASIX [Concomitant]
     Active Substance: FUROSEMIDE
     Dosage: 80 MG, 1X/DAY
     Route: 065
     Dates: start: 20130115, end: 20130115
  18. TRASTUZUMAB. [Suspect]
     Active Substance: TRASTUZUMAB
     Indication: HER-2 POSITIVE BREAST CANCER
     Dosage: 8 MG/KG, SINGLE (LOADING DOSE)
     Route: 042
     Dates: start: 20121123
  19. FOSTER [BECLOMETASONE DIPROPIONATE;FORMOTEROL FUMARATE] [Concomitant]
     Dosage: 3, 1X/DAY (12/200MCG)
     Route: 065
     Dates: start: 20130621
  20. CHOLECALCIFEROL [Concomitant]
     Active Substance: CHOLECALCIFEROL
     Dosage: 50000 IU, MONTHLY
     Route: 065
     Dates: start: 20130205, end: 20130211
  21. LOPERAMIDE [Concomitant]
     Active Substance: LOPERAMIDE
     Dosage: 1, AS NEEDED
     Route: 065
     Dates: start: 20130218, end: 20130916
  22. CLINDAMYCIN. [Concomitant]
     Active Substance: CLINDAMYCIN
     Dosage: 1800 MG, 1X/DAY
     Route: 065
     Dates: start: 20130129, end: 20130211
  23. AUGMENTIN [Concomitant]
     Active Substance: AMOXICILLIN\CLAVULANATE POTASSIUM
     Dosage: 1875 MG, 1X/DAY
     Route: 065
     Dates: start: 20130122, end: 20130127
  24. SALBUTAMOL [Concomitant]
     Active Substance: ALBUTEROL
     Dosage: 800 MG, 1X/DAY
     Route: 065
     Dates: start: 20130113
  25. TOBRAMYCIN. [Concomitant]
     Active Substance: TOBRAMYCIN
     Dosage: 15 MG/KG, 1X/DAY
     Route: 065
     Dates: start: 20130113, end: 20130117
  26. SIMVASTATIN. [Concomitant]
     Active Substance: SIMVASTATIN
     Dosage: 40 MG, 1X/DAY
     Route: 065
     Dates: start: 2011
  27. OMEPRAZOLE. [Concomitant]
     Active Substance: OMEPRAZOLE
     Dosage: 80 MG, 1X/DAY
     Route: 065
     Dates: start: 20130203, end: 20130208
  28. ASCAL [CARBASALATE CALCIUM] [Concomitant]
     Dosage: 100 MG, 1X/DAY
     Route: 065
     Dates: start: 19970424
  29. FORADIL [Concomitant]
     Active Substance: FORMOTEROL FUMARATE
     Dosage: 36 MG, 1X/DAY
     Route: 065
     Dates: start: 201210
  30. PREDNISONE. [Concomitant]
     Active Substance: PREDNISONE
     Dosage: 30 MG, 1X/DAY
     Route: 065
     Dates: start: 20130115, end: 20130121
  31. FLIXOTIDE [Concomitant]
     Active Substance: FLUTICASONE PROPIONATE
     Dosage: 500 UG, ALTERNATE DAY
     Route: 065
     Dates: start: 201210
  32. METFORMIN [Concomitant]
     Active Substance: METFORMIN HYDROCHLORIDE
     Dosage: 1000 MG, 1X/DAY
     Route: 065
     Dates: start: 20110913
  33. PERTUZUMAB. [Suspect]
     Active Substance: PERTUZUMAB
     Indication: HER-2 POSITIVE BREAST CANCER
     Dosage: 840 MG, SINGLE (LOADING DOSE)
     Route: 042
     Dates: start: 20121123, end: 20121123
  34. PERTUZUMAB. [Suspect]
     Active Substance: PERTUZUMAB
     Dosage: 420 MG, EVERY 3 WEEKS (MAINTENANCE DOSEDATE OF LAST DOSE PRIOR TO LVEF DECLINE BECOMING SERIOUS: ...
     Route: 042
     Dates: end: 20130405
  35. AUGMENTIN [Concomitant]
     Active Substance: AMOXICILLIN\CLAVULANATE POTASSIUM
     Dosage: 1875 MG, 1X/DAY
     Route: 065
     Dates: start: 20130728, end: 20130804
  36. FLUCLOXACILLIN [Concomitant]
     Active Substance: FLUCLOXACILLIN
     Dosage: 2000 MG, 1X/DAY
     Route: 065
     Dates: start: 20130108, end: 20130114

REACTIONS (1)
  - Ejection fraction decreased [Recovered/Resolved]

NARRATIVE: CASE EVENT DATE: 20130121
